FAERS Safety Report 20639543 (Version 1)
Quarter: 2022Q1

REPORT INFORMATION
  Report Type: Spontaneous
  Country: US (occurrence: US)
  Receive Date: 20220326
  Receipt Date: 20220326
  Transmission Date: 20220423
  Serious: No
  Sender: FDA-Public Use
  Company Number: US-SA-SAC20220316000232

PATIENT
  Sex: Female

DRUGS (1)
  1. DUPIXENT [Suspect]
     Active Substance: DUPILUMAB
     Indication: Dermatitis atopic
     Dosage: 300 MG/2ML: RX 1: INJECT 2 PENS UNDER THE SKIN (SUBCUTANEOUS INJECTION) ON DAY 1 THEN INJECT 1 PEN O
     Route: 058
     Dates: start: 20220303, end: 20220303

REACTIONS (2)
  - Dermatitis atopic [Not Recovered/Not Resolved]
  - Insomnia [Not Recovered/Not Resolved]
